FAERS Safety Report 23828392 (Version 1)
Quarter: 2024Q2

REPORT INFORMATION
  Report Type: Spontaneous
  Country: US (occurrence: US)
  Receive Date: 20240508
  Receipt Date: 20240508
  Transmission Date: 20240716
  Serious: Yes (Other)
  Sender: FDA-Public Use
  Company Number: US-NOVOPROD-1214809

PATIENT
  Age: 76 Year
  Sex: Female

DRUGS (1)
  1. OZEMPIC [Suspect]
     Active Substance: SEMAGLUTIDE
     Indication: Glucose tolerance impaired
     Dosage: 0.5 MG
     Route: 058

REACTIONS (5)
  - Foot fracture [Not Recovered/Not Resolved]
  - Product use in unapproved indication [Unknown]
  - Wrong technique in product usage process [Unknown]
  - Product communication issue [Unknown]
  - Injection site pain [Unknown]

NARRATIVE: CASE EVENT DATE: 20240323
